FAERS Safety Report 17352754 (Version 1)
Quarter: 2020Q1

REPORT INFORMATION
  Report Type: Spontaneous
  Country: US (occurrence: US)
  Receive Date: 20200131
  Receipt Date: 20200131
  Transmission Date: 20200409
  Serious: Yes (Disabling)
  Sender: FDA-Public Use
  Company Number: US-TEVA-2020-US-1174790

PATIENT

DRUGS (1)
  1. DOCETAXEL. [Suspect]
     Active Substance: DOCETAXEL
     Dosage: MARCH 2014 - JUNE/JULY 2014
     Route: 065
     Dates: start: 201403

REACTIONS (1)
  - Alopecia [Not Recovered/Not Resolved]
